FAERS Safety Report 7278446-6 (Version None)
Quarter: 2011Q1

REPORT INFORMATION
  Report Type: 
  Country: None (occurrence: None)
  Receive Date: 20110202
  Receipt Date: 20110202
  Transmission Date: 20110831
  Serious: Yes (Death)
  Sender: FDA-Public Use
  Company Number: None

PATIENT
  Sex: Female
  Weight: 76.4 kg

DRUGS (4)
  1. HYDRALAZINE [Suspect]
  2. VALPROIC ACID [Suspect]
     Dates: start: 20101215, end: 20110121
  3. VALPROIC ACID [Suspect]
  4. HYDRALAZINE [Suspect]
     Dates: start: 20101229, end: 20110121

REACTIONS (1)
  - SLOW RESPONSE TO STIMULI [None]
